FAERS Safety Report 23179577 (Version 3)
Quarter: 2025Q3

REPORT INFORMATION
  Report Type: Report from Study
  Country: US (occurrence: US)
  Receive Date: 20231114
  Receipt Date: 20250725
  Transmission Date: 20251021
  Serious: No
  Sender: AMGEN
  Company Number: US-AMGEN-USASP2023203060

PATIENT
  Sex: Female
  Weight: 54.422 kg

DRUGS (1)
  1. OTEZLA [Suspect]
     Active Substance: APREMILAST
     Indication: Psoriasis
     Dosage: 30 MILLIGRAM, BID
     Route: 065

REACTIONS (1)
  - Weight decreased [Not Recovered/Not Resolved]
